FAERS Safety Report 7415200-6 (Version None)
Quarter: 2011Q2

REPORT INFORMATION
  Report Type: 
  Country: None (occurrence: None)
  Receive Date: 20110406
  Receipt Date: 20110322
  Transmission Date: 20111010
  Serious: Yes (Other)
  Sender: FDA-Public Use
  Company Number: 011813

PATIENT
  Sex: Female

DRUGS (5)
  1. SINGULAIR [Concomitant]
  2. FLUTICASONE PROPIONATE [Concomitant]
  3. XYZAL [Suspect]
     Indication: HYPERSENSITIVITY
     Dosage: 1 DF QD ORAL
     Route: 048
     Dates: start: 20090901
  4. ADVAIR DISKUS 100/50 [Concomitant]
  5. XOPENEX [Concomitant]

REACTIONS (2)
  - DRUG EXPOSURE DURING PREGNANCY [None]
  - CAESAREAN SECTION [None]
